FAERS Safety Report 9737213 (Version 2)
Quarter: 2014Q1

REPORT INFORMATION
  Report Type: Spontaneous
  Country: US (occurrence: US)
  Receive Date: 20131206
  Receipt Date: 20140102
  Transmission Date: 20141002
  Serious: Yes (Other)
  Sender: FDA-Public Use
  Company Number: US-ROCHE-1312881

PATIENT
  Age: 43 Year
  Sex: Female

DRUGS (1)
  1. ACTIVASE [Suspect]
     Indication: ANDROGEN INSENSITIVITY SYNDROME
     Route: 065

REACTIONS (3)
  - Haemorrhage intracranial [Unknown]
  - Headache [Unknown]
  - Mental status changes [Unknown]
